FAERS Safety Report 17894445 (Version 1)
Quarter: 2020Q2

REPORT INFORMATION
  Report Type: Spontaneous
  Country: DE (occurrence: DE)
  Receive Date: 20200615
  Receipt Date: 20200615
  Transmission Date: 20200714
  Serious: Yes (Hospitalization)
  Sender: FDA-Public Use
  Company Number: DE-SUN PHARMACEUTICAL INDUSTRIES LTD-2020RR-250285

PATIENT
  Age: 42 Year
  Sex: Male
  Weight: 85 kg

DRUGS (2)
  1. IBUPROFEN. [Concomitant]
     Active Substance: IBUPROFEN
     Indication: RECTAL FISSURE
     Dosage: 400 MILLIGRAM, UNK
     Route: 048
     Dates: start: 20200403, end: 20200422
  2. ILUMETRI 100 MG, INJEKTIONSL?SUNG [Suspect]
     Active Substance: TILDRAKIZUMAB
     Indication: PSORIASIS
     Dosage: 100 MG, 1 IN 12 WK
     Route: 048
     Dates: start: 20190412

REACTIONS (1)
  - Anal fissure excision [Recovered/Resolved]

NARRATIVE: CASE EVENT DATE: 20200403
